FAERS Safety Report 4773354-4 (Version None)
Quarter: 2005Q3

REPORT INFORMATION
  Report Type: 
  Country: None (occurrence: None)
  Receive Date: 20050916
  Receipt Date: 20050907
  Transmission Date: 20060218
  Serious: Yes (Hospitalization, Disabling, Other)
  Sender: FDA-Public Use
  Company Number: 2005125462

PATIENT
  Age: 48 Year
  Sex: Female
  Weight: 61.6892 kg

DRUGS (10)
  1. FELDENE [Suspect]
     Indication: OSTEOARTHRITIS
     Dosage: 40 MG (20 MG, 2 IN 1 D)
     Dates: start: 19800101
  2. FELDENE [Suspect]
     Indication: RHEUMATOID ARTHRITIS
     Dosage: 40 MG (20 MG, 2 IN 1 D)
     Dates: start: 19800101
  3. LANOXIN [Concomitant]
  4. ZOCOR [Concomitant]
  5. LIPITOR [Concomitant]
  6. MODURETIC 5-50 [Concomitant]
  7. TYLENOL ARTHRITIS (PARACETAMOL) [Concomitant]
  8. ASPRO (ACETYLSALICYLIC ACID) [Concomitant]
  9. HYDROXYCHLOROQUINE SULFATE [Concomitant]
  10. STATINS (HHM COA REDUCTASE INHIBITORS) [Concomitant]

REACTIONS (9)
  - CARDIAC VALVE DISEASE [None]
  - CARDIOMEGALY [None]
  - CHEST PAIN [None]
  - HYPERTENSION [None]
  - MYOCARDIAL INFARCTION [None]
  - RAYNAUD'S PHENOMENON [None]
  - SCLERODERMA [None]
  - SJOGREN'S SYNDROME [None]
  - SYSTEMIC LUPUS ERYTHEMATOSUS [None]
